FAERS Safety Report 25879743 (Version 1)
Quarter: 2025Q4

REPORT INFORMATION
  Report Type: Spontaneous
  Country: GB (occurrence: GB)
  Receive Date: 20251003
  Receipt Date: 20251003
  Transmission Date: 20260117
  Serious: Yes (Death)
  Sender: ABBVIE
  Company Number: GB-PFIZER INC-202500194439

PATIENT
  Sex: Male

DRUGS (1)
  1. AVIBACTAM\AZTREONAM [Suspect]
     Active Substance: AVIBACTAM\AZTREONAM
     Indication: Bacterial infection
     Dosage: 1.5 G, 4X/DAY(FREQUENCY 6 HOURS)
     Route: 042

REACTIONS (2)
  - Off label use [Fatal]
  - Malaise [Fatal]
